FAERS Safety Report 4689772-9 (Version None)
Quarter: 2005Q2

REPORT INFORMATION
  Report Type: 
  Country: None (occurrence: None)
  Receive Date: 20050608
  Receipt Date: 20040630
  Transmission Date: 20051028
  Serious: Yes (Other)
  Sender: FDA-Public Use
  Company Number: 372846

PATIENT
  Age: 14 Year
  Sex: Male
  Weight: 72.6 kg

DRUGS (2)
  1. ACCUTANE [Suspect]
     Indication: ACNE
     Dosage: 2 PER DAY ORAL
     Route: 048
     Dates: start: 20031115, end: 20040215
  2. ISOTRETINOIN [Suspect]
     Indication: ACNE
     Dosage: 2 PER DAY ORAL
     Route: 048
     Dates: start: 20040215, end: 20040614

REACTIONS (13)
  - ABDOMINAL PAIN [None]
  - AFFECT LABILITY [None]
  - ANGER [None]
  - ANOREXIA [None]
  - ANXIETY [None]
  - CRYING [None]
  - DEPRESSION [None]
  - FEAR [None]
  - HEADACHE [None]
  - NAUSEA [None]
  - NERVOUSNESS [None]
  - PANIC ATTACK [None]
  - TENSION [None]
